FAERS Safety Report 8270998-2 (Version None)
Quarter: 2012Q2

REPORT INFORMATION
  Report Type: 
  Country: None (occurrence: None)
  Receive Date: 20120410
  Receipt Date: 20120329
  Transmission Date: 20120825
  Serious: Yes (Other)
  Sender: FDA-Public Use
  Company Number: CA-ROCHE-GNE296508

PATIENT
  Sex: Male
  Weight: 98.064 kg

DRUGS (1)
  1. XOLAIR [Suspect]
     Indication: ASTHMA
     Route: 058
     Dates: start: 20070712

REACTIONS (4)
  - STRESS AT WORK [None]
  - FATIGUE [None]
  - NEOPLASM MALIGNANT [None]
  - HEART RATE INCREASED [None]
